FAERS Safety Report 6408726-5 (Version None)
Quarter: 2009Q4

REPORT INFORMATION
  Report Type: 
  Country: None (occurrence: None)
  Receive Date: 20091019
  Receipt Date: 20091005
  Transmission Date: 20100525
  Serious: Yes (Life-Threatening, Hospitalization)
  Sender: FDA-Public Use
  Company Number: GXKR2009FR10957

PATIENT
  Age: 3 Month
  Sex: Male

DRUGS (2)
  1. HYDROCHLOROTHIAZIDE           UKNOWN [Suspect]
     Indication: CONGENITAL NEPHROGENIC DIABETES INSIPIDUS
     Dosage: 2 MG/KG, IN TWO DIVITED DOSES ; 1 MG/KG/DAY ; 2 MG/KG/DAY
  2. INDOMETHACIN                      UNKNOWN [Suspect]
     Indication: CONGENITAL NEPHROGENIC DIABETES INSIPIDUS
     Dosage: 2 MG/KG, IN TWO DIVITED DOSES, 1 MG/KG/DAY ; 2 MG/KG/DAY

REACTIONS (7)
  - HYPONATRAEMIA [None]
  - OEDEMA [None]
  - SOMNOLENCE [None]
  - STATUS EPILEPTICUS [None]
  - WATER INTOXICATION [None]
  - WEIGHT DECREASED [None]
  - WEIGHT INCREASED [None]
